FAERS Safety Report 7530359-8 (Version None)
Quarter: 2011Q2

REPORT INFORMATION
  Report Type: 
  Country: None (occurrence: None)
  Receive Date: 20110607
  Receipt Date: 20110524
  Transmission Date: 20111010
  Serious: Yes (Other)
  Sender: FDA-Public Use
  Company Number: US-UCBSA-032071

PATIENT
  Sex: Male

DRUGS (1)
  1. CIMZIA [Suspect]
     Indication: CROHN'S DISEASE
     Dosage: FORM : PFS
     Route: 058
     Dates: start: 20101018

REACTIONS (2)
  - PANCREATIC CYST [None]
  - TOOTH INFECTION [None]
